FAERS Safety Report 10947249 (Version 2)
Quarter: 2015Q2

REPORT INFORMATION
  Report Type: Spontaneous
  Country: US (occurrence: US)
  Receive Date: 20150321
  Receipt Date: 20150525
  Transmission Date: 20150821
  Serious: No
  Sender: FDA-Public Use
  Company Number: US-JNJFOC-20141004981

PATIENT
  Age: 39 Year
  Sex: Male
  Weight: 65 kg

DRUGS (8)
  1. TENOFOVIR [Concomitant]
     Active Substance: TENOFOVIR
     Route: 065
  2. RITONAVIR. [Concomitant]
     Active Substance: RITONAVIR
     Route: 065
  3. USTEKINUMAB [Suspect]
     Active Substance: USTEKINUMAB
     Indication: PSORIASIS
     Dosage: RECEIVE INDUCATION DOSES AT WEEK 0 AND WEEK 4
     Route: 058
  4. USTEKINUMAB [Suspect]
     Active Substance: USTEKINUMAB
     Indication: PSORIATIC ARTHROPATHY
     Dosage: RECEIVE INDUCATION DOSES AT WEEK 0 AND WEEK 4
     Route: 058
  5. USTEKINUMAB [Suspect]
     Active Substance: USTEKINUMAB
     Indication: PSORIASIS
     Dosage: RECEIVE INDUCATION DOSES AT WEEK 0 AND WEEK 4
     Route: 058
     Dates: start: 201208
  6. RALTEGRAVIR [Concomitant]
     Active Substance: RALTEGRAVIR
     Route: 065
  7. USTEKINUMAB [Suspect]
     Active Substance: USTEKINUMAB
     Indication: PSORIATIC ARTHROPATHY
     Dosage: RECEIVE INDUCATION DOSES AT WEEK 0 AND WEEK 4
     Route: 058
     Dates: start: 201208
  8. LOPINAVIR [Concomitant]
     Active Substance: LOPINAVIR
     Route: 065

REACTIONS (1)
  - Treatment noncompliance [Unknown]
